FAERS Safety Report 6809424-6 (Version None)
Quarter: 2010Q2

REPORT INFORMATION
  Report Type: 
  Country: None (occurrence: None)
  Receive Date: 20100625
  Receipt Date: 20100610
  Transmission Date: 20101027
  Serious: Yes (Hospitalization)
  Sender: FDA-Public Use
  Company Number: A-CH2010-37280

PATIENT
  Age: 73 Year
  Sex: Female
  Weight: 39.6 kg

DRUGS (16)
  1. TRACLEER [Suspect]
     Indication: PULMONARY ARTERIAL HYPERTENSION
     Dosage: ORAL
     Route: 048
     Dates: start: 20100316, end: 20100319
  2. TRACLEER [Suspect]
     Indication: PULMONARY ARTERIAL HYPERTENSION
     Dosage: ORAL
     Route: 048
     Dates: start: 20100325, end: 20100404
  3. DORNER (BERAPROST SODIUM) [Concomitant]
  4. LANSOPRAZOLE [Concomitant]
  5. DIOVAN [Concomitant]
  6. NEUQUINON (UBIDECARENONE) [Concomitant]
  7. DIGOXIN [Concomitant]
  8. DILTIAZEM HYDROCHLORIDE [Concomitant]
  9. LASIX [Concomitant]
  10. SELBEX (TEPRENONE) [Concomitant]
  11. LOPERAMIDE HCL [Concomitant]
  12. ALDACTONE [Concomitant]
  13. HIRUDOID (HEPARINOID) [Concomitant]
  14. WARFARIN POTASSIUM (WARFARIN POTASSIUM) [Concomitant]
  15. OXYGEN (OXYGEN) [Concomitant]
  16. TADALAFIL (TADALAFIL) [Concomitant]

REACTIONS (3)
  - ANAEMIA [None]
  - HYPOTENSION [None]
  - URINE OUTPUT DECREASED [None]
